FAERS Safety Report 21724247 (Version 2)
Quarter: 2022Q4

REPORT INFORMATION
  Report Type: Spontaneous
  Country: US (occurrence: US)
  Receive Date: 20221213
  Receipt Date: 20221213
  Transmission Date: 20230112
  Serious: No
  Sender: FDA-Public Use
  Company Number: US-ALLERGAN-2237011US

PATIENT
  Sex: Female

DRUGS (4)
  1. DURYSTA [Suspect]
     Active Substance: BIMATOPROST
     Indication: Intraocular pressure test
     Dosage: UNK
     Route: 047
  2. DURYSTA [Suspect]
     Active Substance: BIMATOPROST
     Indication: Open angle glaucoma
  3. DURYSTA [Suspect]
     Active Substance: BIMATOPROST
     Indication: Intraocular pressure test
     Dosage: UNK
  4. DURYSTA [Suspect]
     Active Substance: BIMATOPROST
     Indication: Open angle glaucoma

REACTIONS (3)
  - Inflammation [Unknown]
  - Anterior chamber flare [Unknown]
  - Photophobia [Unknown]
